FAERS Safety Report 20852640 (Version 1)
Quarter: 2022Q2

REPORT INFORMATION
  Report Type: Spontaneous
  Country: JP (occurrence: JP)
  Receive Date: 20220520
  Receipt Date: 20220520
  Transmission Date: 20220721
  Serious: Yes (Hospitalization)
  Sender: FDA-Public Use
  Company Number: JP-STRIDES ARCOLAB LIMITED-2022SP005726

PATIENT
  Age: 71 Year
  Sex: Male
  Weight: 53.6 kg

DRUGS (13)
  1. CISPLATIN [Suspect]
     Active Substance: CISPLATIN
     Indication: Small cell lung cancer extensive stage
     Dosage: CISPLATIN 60 MG/M2 ON DAY 1
     Route: 065
     Dates: start: 20200902
  2. CISPLATIN [Suspect]
     Active Substance: CISPLATIN
     Dosage: ON DAY 28, 50 MG/M 2
     Route: 065
     Dates: start: 202009
  3. DEXAMETHASONE [Suspect]
     Active Substance: DEXAMETHASONE
     Indication: Prophylaxis of nausea and vomiting
     Dosage: 9.5 MILLIGRAM/DAY
     Route: 065
     Dates: start: 20200902
  4. DEXAMETHASONE [Suspect]
     Active Substance: DEXAMETHASONE
     Dosage: 5.7 MILLIGRAM/DAY
     Route: 065
     Dates: start: 202009
  5. AMLODIPINE [Suspect]
     Active Substance: AMLODIPINE BESYLATE
     Indication: Hypertension
     Dosage: 5 MILLIGRAM/DAY
     Route: 065
  6. IRINOTECAN [Suspect]
     Active Substance: IRINOTECAN
     Indication: Small cell lung cancer extensive stage
     Dosage: IRINOTECAN 60 MG/M2 FOR 3 CONSECUTIVE WEEKS FOLLOWED BY 1-WEEK REST
     Route: 065
     Dates: start: 20200902
  7. IRINOTECAN [Suspect]
     Active Substance: IRINOTECAN
     Dosage: ON DAY 28, 50 MG/M 2
     Route: 065
     Dates: start: 202009
  8. VALSARTAN [Suspect]
     Active Substance: VALSARTAN
     Indication: Hypertension
     Dosage: 80 MILLIGRAM/DAY
     Route: 065
  9. PALONOSETRON [Suspect]
     Active Substance: PALONOSETRON
     Indication: Prophylaxis of nausea and vomiting
     Dosage: 0.75 MILLIGRAM
     Route: 065
     Dates: start: 20200902
  10. APREPITANT [Suspect]
     Active Substance: APREPITANT
     Indication: Prophylaxis of nausea and vomiting
     Dosage: 125 MG/DAY, ON DAY 2
     Route: 065
     Dates: start: 20200902, end: 20200902
  11. APREPITANT [Suspect]
     Active Substance: APREPITANT
     Dosage: 80 MG/DAY, ON DAY 3 - 4
     Route: 065
     Dates: start: 20200903, end: 20200904
  12. FEBUXOSTAT [Concomitant]
     Active Substance: FEBUXOSTAT
     Indication: Product used for unknown indication
     Dosage: 60 MILLIGRAM/DAY
     Route: 065
  13. PEGFILGRASTIM [Concomitant]
     Active Substance: PEGFILGRASTIM
     Indication: Prophylaxis
     Dosage: 3.6 MILLIGRAM/DAY
     Route: 065
     Dates: start: 202009

REACTIONS (4)
  - Constipation [Recovered/Resolved]
  - Headache [Recovered/Resolved]
  - Hypotension [Recovered/Resolved]
  - Off label use [Unknown]

NARRATIVE: CASE EVENT DATE: 20200901
